FAERS Safety Report 5225859-X (Version None)
Quarter: 2007Q1

REPORT INFORMATION
  Report Type: 
  Country: None (occurrence: None)
  Receive Date: 20070201
  Receipt Date: 20070123
  Transmission Date: 20070707
  Serious: Yes (Other)
  Sender: FDA-Public Use
  Company Number: AU-JNJFOC-20070104674

PATIENT
  Sex: Female

DRUGS (2)
  1. RISPERDAL [Suspect]
     Indication: SCHIZOAFFECTIVE DISORDER
  2. EFFEXOR [Suspect]
     Indication: SCHIZOAFFECTIVE DISORDER

REACTIONS (9)
  - BLOOD TESTOSTERONE INCREASED [None]
  - BREAST ENLARGEMENT [None]
  - DIZZINESS [None]
  - GALACTORRHOEA [None]
  - POLYCYSTIC OVARIES [None]
  - PSYCHOTIC DISORDER [None]
  - RASH PRURITIC [None]
  - SKIN ODOUR ABNORMAL [None]
  - TREMOR [None]
